FAERS Safety Report 7318476-9 (Version None)
Quarter: 2011Q1

REPORT INFORMATION
  Report Type: 
  Country: None (occurrence: None)
  Receive Date: 20110228
  Receipt Date: 20110223
  Transmission Date: 20110831
  Serious: Yes (Other)
  Sender: FDA-Public Use
  Company Number: US-PFIZER INC-2011040686

PATIENT

DRUGS (2)
  1. TORISEL [Suspect]
  2. ACE INHIBITOR NOS [Suspect]

REACTIONS (1)
  - ANGIOEDEMA [None]
